FAERS Safety Report 7411727-1 (Version None)
Quarter: 2011Q2

REPORT INFORMATION
  Report Type: 
  Country: None (occurrence: None)
  Receive Date: 20110413
  Receipt Date: 20110103
  Transmission Date: 20111010
  Serious: Yes (Hospitalization)
  Sender: FDA-Public Use
  Company Number: US-BRISTOL-MYERS SQUIBB COMPANY-15429194

PATIENT
  Sex: Male

DRUGS (2)
  1. ERBITUX [Suspect]
     Indication: COLON CANCER METASTATIC
     Dosage: RECIEVED 23 CC INFUSION ON 30NOV10
     Dates: start: 20101130, end: 20101130
  2. BENADRYL [Concomitant]
     Indication: PREMEDICATION
     Dosage: 10:40AM; GIVEN 1 HR PRIOR TO INFUSION OF ERBITUX.

REACTIONS (3)
  - PRURITUS [None]
  - RESPIRATORY DISTRESS [None]
  - HYPOTENSION [None]
